FAERS Safety Report 6933239-1 (Version None)
Quarter: 2010Q3

REPORT INFORMATION
  Report Type: 
  Country: None (occurrence: None)
  Receive Date: 20100820
  Receipt Date: 20100816
  Transmission Date: 20110219
  Serious: Yes (Life-Threatening, Hospitalization)
  Sender: FDA-Public Use
  Company Number: US-RB-004344-10

PATIENT
  Sex: Female

DRUGS (1)
  1. SUBUTEX [Suspect]
     Indication: DRUG DEPENDENCE
     Dosage: DOSING INFORMATION UNKNOWN
     Route: 064
     Dates: start: 20090101, end: 20100201

REACTIONS (3)
  - DRUG EXPOSURE DURING PREGNANCY [None]
  - HEART RATE IRREGULAR [None]
  - PREMATURE BABY [None]
